FAERS Safety Report 9781134 (Version 1)
Quarter: 2013Q4

REPORT INFORMATION
  Report Type: Spontaneous
  Country: US (occurrence: US)
  Receive Date: 20131224
  Receipt Date: 20131224
  Transmission Date: 20140711
  Serious: Yes (Death, Hospitalization, Other)
  Sender: FDA-Public Use
  Company Number: US-ASTELLAS-2013US013197

PATIENT
  Age: 59 Year
  Sex: Male

DRUGS (2)
  1. PROGRAF [Suspect]
     Indication: RENAL TRANSPLANT
     Dosage: 1.5 MG, UID/QD (1 MG IN AM AND 0.5 MG IN PM)
     Route: 048
     Dates: start: 20020725, end: 20130908
  2. PROGRAF [Suspect]
     Indication: DIABETES MELLITUS

REACTIONS (5)
  - Off label use [Unknown]
  - Death [Fatal]
  - Malaise [Unknown]
  - Cardiac disorder [Unknown]
  - Diabetes mellitus [Unknown]
